FAERS Safety Report 17398796 (Version 2)
Quarter: 2020Q1

REPORT INFORMATION
  Report Type: Spontaneous
  Country: FR (occurrence: FR)
  Receive Date: 20200210
  Receipt Date: 20200216
  Transmission Date: 20200409
  Serious: Yes (Hospitalization)
  Sender: FDA-Public Use
  Company Number: NVSC2020FR031172

PATIENT
  Age: 85 Year
  Sex: Female
  Weight: 43.5 kg

DRUGS (2)
  1. BISOPROLOL [Suspect]
     Active Substance: BISOPROLOL
     Indication: TOXICITY TO VARIOUS AGENTS
     Dosage: UNK
     Route: 048
  2. BROMAZEPAM [Suspect]
     Active Substance: BROMAZEPAM
     Indication: TOXICITY TO VARIOUS AGENTS
     Dosage: UNK
     Route: 048

REACTIONS (3)
  - Coma [Recovered/Resolved]
  - Hyperkalaemia [Recovered/Resolved]
  - Bradycardia [Recovered/Resolved]

NARRATIVE: CASE EVENT DATE: 20191105
